FAERS Safety Report 24552662 (Version 3)
Quarter: 2025Q1

REPORT INFORMATION
  Report Type: Spontaneous
  Country: US (occurrence: US)
  Receive Date: 20241027
  Receipt Date: 20250108
  Transmission Date: 20250409
  Serious: No
  Sender: CSL BEHRING
  Company Number: US-BEH-2024181449

PATIENT
  Age: 44 Year
  Sex: Female

DRUGS (1)
  1. HUMATE-P [Suspect]
     Active Substance: HUMAN COAGULATION FACTOR VIII/VON WILLEBRAND FACTOR COMPLEX
     Indication: Von Willebrand^s disease
     Route: 065

REACTIONS (3)
  - Migraine [Unknown]
  - Headache [Unknown]
  - Treatment noncompliance [Unknown]
